FAERS Safety Report 6696781-7 (Version None)
Quarter: 2010Q2

REPORT INFORMATION
  Report Type: 
  Country: None (occurrence: None)
  Receive Date: 20100426
  Receipt Date: 20100414
  Transmission Date: 20101027
  Serious: Yes (Hospitalization)
  Sender: FDA-Public Use
  Company Number: FR-PFIZER INC-2010050508

PATIENT
  Age: 60 Year
  Sex: Male

DRUGS (2)
  1. ATARAX [Suspect]
     Dosage: 25 MG, 1X/DAY
     Route: 048
     Dates: start: 20100225, end: 20100311
  2. OFLOCET [Suspect]
     Dosage: 200 MG, 2X/DAY
     Route: 048
     Dates: start: 20100223, end: 20100312

REACTIONS (1)
  - NEUTROPENIA [None]
